FAERS Safety Report 18762288 (Version 1)
Quarter: 2021Q1

REPORT INFORMATION
  Report Type: Spontaneous
  Country: HU (occurrence: HU)
  Receive Date: 20210120
  Receipt Date: 20210120
  Transmission Date: 20210419
  Serious: Yes (Other)
  Sender: FDA-Public Use
  Company Number: HU-TEVA-2021-HU-1870702

PATIENT
  Age: 43 Year
  Sex: Male

DRUGS (2)
  1. CLOPIDOGREL [Concomitant]
     Active Substance: CLOPIDOGREL BISULFATE
     Route: 048
     Dates: start: 202012
  2. NAMAXIR 15 MG SOLUTION FOR INJECTION IN PREFILLED SYRINGE [Suspect]
     Active Substance: METHOTREXATE
     Indication: PSORIASIS
     Route: 058
     Dates: start: 20191021, end: 202012

REACTIONS (1)
  - Cerebrovascular accident [Unknown]

NARRATIVE: CASE EVENT DATE: 2020
